FAERS Safety Report 10566548 (Version 2)
Quarter: 2014Q4

REPORT INFORMATION
  Report Type: Spontaneous
  Country: DZ (occurrence: DZ)
  Receive Date: 20141105
  Receipt Date: 20141121
  Transmission Date: 20150529
  Serious: Yes (Death, Other)
  Sender: FDA-Public Use
  Company Number: DZ-MYLANLABS-2014M1009086

PATIENT

DRUGS (6)
  1. CYSTAGON [Suspect]
     Active Substance: CYSTEAMINE BITARTRATE
     Indication: CYSTINOSIS
     Dosage: 1200 MG/M2, QD
     Route: 048
     Dates: start: 20120603, end: 20141020
  2. POTASSIUM GLUCONATE [Concomitant]
     Active Substance: POTASSIUM GLUCONATE
     Dosage: UNK
     Route: 065
     Dates: start: 20120603, end: 20141020
  3. CARNITINE [Concomitant]
     Active Substance: CARNITINE
     Indication: NUTRITIONAL SUPPLEMENTATION
     Dosage: 2.5 ML, UNK
     Route: 065
  4. INDOMETACINE [Concomitant]
     Dosage: 2 MG/KG, UNK
     Route: 065
     Dates: start: 20120603, end: 20141020
  5. ALFACALCIDOL [Concomitant]
     Active Substance: ALFACALCIDOL
     Dosage: 0.25 ?G, QD
     Route: 065
     Dates: start: 20120603, end: 20141020
  6. SODIUM BICARBONATE. [Concomitant]
     Active Substance: SODIUM BICARBONATE
     Dosage: 6 G, QD
     Route: 065
     Dates: start: 20120603, end: 20141020

REACTIONS (6)
  - Vomiting [Not Recovered/Not Resolved]
  - Cranial nerve palsies multiple [Not Recovered/Not Resolved]
  - Diarrhoea [Not Recovered/Not Resolved]
  - Sinusitis [Not Recovered/Not Resolved]
  - Nasopharyngeal cancer [Fatal]
  - Exophthalmos [Not Recovered/Not Resolved]

NARRATIVE: CASE EVENT DATE: 20141004
